FAERS Safety Report 5762092-7 (Version None)
Quarter: 2008Q2

REPORT INFORMATION
  Report Type: 
  Country: None (occurrence: None)
  Receive Date: 20080604
  Receipt Date: 20080516
  Transmission Date: 20081010
  Serious: Yes (Other)
  Sender: FDA-Public Use
  Company Number: S08-FRA-01739-01

PATIENT
  Age: 86 Year
  Sex: Female

DRUGS (5)
  1. MEMANTINE HCL [Suspect]
     Indication: DEMENTIA ALZHEIMER'S TYPE
     Dosage: 20 MG QD PO
     Route: 048
     Dates: end: 20080130
  2. ATHYMIL (MIANSERIN HYDROCHLORIDE) [Suspect]
     Dosage: 10 MG QD
     Dates: end: 20080130
  3. RISPERDAL [Concomitant]
  4. IMOVANE (ZOPICLONE) [Concomitant]
  5. KARDEGIC (ACETYLSALICYLATE LYSINE) [Concomitant]

REACTIONS (5)
  - ELECTROENCEPHALOGRAM ABNORMAL [None]
  - EPILEPSY [None]
  - GAIT DISTURBANCE [None]
  - SOMNOLENCE [None]
  - TREMOR [None]
